FAERS Safety Report 6616078-0 (Version None)
Quarter: 2010Q1

REPORT INFORMATION
  Report Type: 
  Country: None (occurrence: None)
  Receive Date: 20100305
  Receipt Date: 20100222
  Transmission Date: 20100710
  Serious: Yes (Hospitalization, Other)
  Sender: FDA-Public Use
  Company Number: PHEH2008US03989

PATIENT
  Sex: Male
  Weight: 99.229 kg

DRUGS (35)
  1. AREDIA [Suspect]
  2. ZOMETA [Suspect]
  3. CHEMOTHERAPEUTICS NOS [Concomitant]
  4. RADIATION THERAPY [Concomitant]
     Dosage: UNK
  5. PREDNISONE [Concomitant]
  6. ALKERAN [Concomitant]
  7. THALIDOMIDE [Concomitant]
  8. CYTOXAN [Concomitant]
  9. ASPIRIN [Concomitant]
     Dosage: 325 MG, QD
     Route: 048
  10. COLACE [Concomitant]
     Dosage: 100 MG, BID
     Route: 048
  11. NIFEREX (POLYSACCHARIDE-IRON COMPLEX) [Concomitant]
     Dosage: 150 MG, BID
     Route: 048
  12. ZOCOR [Concomitant]
     Dosage: 20 MG, QD
     Route: 048
  13. PEPCID [Concomitant]
     Dosage: 20 MG, BID
     Route: 048
  14. AMIODARONE [Concomitant]
     Dosage: 200 MG, BID
     Route: 048
  15. CARVEDILOL [Concomitant]
     Dosage: 6.25 MG, BID
     Route: 048
  16. LISINOPRIL [Concomitant]
     Dosage: 10 MG, QD
     Route: 048
  17. LASIX [Concomitant]
     Dosage: 20 MG, BID
     Route: 048
  18. MILK OF MAGNESIA TAB [Concomitant]
     Dosage: 30 ML, PRN
     Route: 048
  19. TYLENOL-500 [Concomitant]
     Dosage: 1000 MG, PRN
     Route: 048
  20. MAALOX                                  /USA/ [Concomitant]
     Dosage: 30 ML, PRN
     Route: 048
  21. DARVOCET-N 100 [Concomitant]
     Dosage: 100 MG, PRN
     Route: 048
  22. CELEXA [Concomitant]
     Dosage: 20 MG, QD
     Route: 048
  23. DECADRON [Concomitant]
  24. AMOXICILLIN [Concomitant]
     Dosage: 500 MG, UNK
  25. PERIDEX [Concomitant]
  26. VELCADE [Concomitant]
  27. ALKERAN [Concomitant]
  28. OMNICEF [Concomitant]
     Dosage: 300 MG, UNK
  29. CYCLOPHOSPHAMIDE [Suspect]
  30. ZITHROMAX [Concomitant]
  31. DEXAMETHASONE [Concomitant]
  32. TRAMADOL HCL [Concomitant]
  33. CEPHALEXIN [Concomitant]
  34. FERREX [Concomitant]
  35. KETOROLAC TROMETHAMINE [Concomitant]

REACTIONS (49)
  - AMNESIA [None]
  - ANAEMIA [None]
  - ANXIETY [None]
  - AORTIC STENOSIS [None]
  - AORTIC VALVE REPLACEMENT [None]
  - ATRIAL FIBRILLATION [None]
  - BENIGN PROSTATIC HYPERPLASIA [None]
  - BLOOD PRESSURE DIASTOLIC DECREASED [None]
  - BONE DISORDER [None]
  - CARDIAC DISORDER [None]
  - CARDIAC FAILURE CONGESTIVE [None]
  - CARDIAC VALVE DISEASE [None]
  - CORONARY ARTERY BYPASS [None]
  - CORONARY ARTERY DISEASE [None]
  - CYST [None]
  - CYST REMOVAL [None]
  - DENTAL CARIES [None]
  - DEPRESSION [None]
  - DUPUYTREN'S CONTRACTURE [None]
  - DYSPHAGIA [None]
  - DYSPNOEA [None]
  - DYSURIA [None]
  - EATING DISORDER [None]
  - EMOTIONAL DISTRESS [None]
  - EPISTAXIS [None]
  - FALL [None]
  - GINGIVAL DISORDER [None]
  - HERPES ZOSTER [None]
  - HYPONATRAEMIA [None]
  - INFECTION [None]
  - INJURY [None]
  - LOSS OF CONSCIOUSNESS [None]
  - MUSCULOSKELETAL DISCOMFORT [None]
  - NEUROPATHY PERIPHERAL [None]
  - NOCTURIA [None]
  - OSTEONECROSIS [None]
  - PAIN [None]
  - PANCYTOPENIA [None]
  - PARANASAL SINUS HYPERSECRETION [None]
  - PERIORBITAL HAEMATOMA [None]
  - PHYSICAL DISABILITY [None]
  - PRODUCTIVE COUGH [None]
  - RESPIRATORY FAILURE [None]
  - ROTATOR CUFF SYNDROME [None]
  - SCAR [None]
  - TOOTH EXTRACTION [None]
  - VENTRICULAR DYSFUNCTION [None]
  - VISUAL IMPAIRMENT [None]
  - WALKING AID USER [None]
